FAERS Safety Report 4867395-6 (Version None)
Quarter: 2005Q4

REPORT INFORMATION
  Report Type: 
  Country: None (occurrence: None)
  Receive Date: 20051222
  Receipt Date: 20051213
  Transmission Date: 20060501
  Serious: Yes (Hospitalization, Other)
  Sender: FDA-Public Use
  Company Number: CHPA2003US02243

PATIENT
  Age: 56 Year
  Sex: Male
  Weight: 97.5 kg

DRUGS (24)
  1. EX-LAX UNKNOWN (NCH) (UNKNOWN) [Suspect]
     Dosage: ORAL
     Route: 048
     Dates: start: 19880101
  2. ZANTAC [Concomitant]
  3. PROPULSID [Concomitant]
  4. ZESTRIL [Concomitant]
  5. LOPID [Concomitant]
  6. DIABETA [Concomitant]
  7. GEMFIBROZIL [Concomitant]
  8. LIPITOR [Concomitant]
  9. FLEET (SODIUM CITRATE, SODIUM LAURYL SULFOACETATE) [Concomitant]
  10. CENTRUM SILVER (ASCORBIC ACID, CALCIUM, MINIERALS NOS, RETINOL, TOCOPH [Concomitant]
  11. ASPIRIN [Concomitant]
  12. PRILOSEC [Concomitant]
  13. VITAMIN E [Concomitant]
  14. GLUCOPHAGE [Concomitant]
  15. GLUCOTROL [Concomitant]
  16. GLIPIZIDE [Concomitant]
  17. NAPROXEN [Concomitant]
  18. NEXIUM [Concomitant]
  19. ATENOLOL [Concomitant]
  20. LISINOPRIL [Concomitant]
  21. METFORMIN HCL [Concomitant]
  22. HYTRIN [Concomitant]
  23. ASENDIN [Concomitant]
  24. MYLANTA (CALCIUM CARBONATE) [Concomitant]

REACTIONS (30)
  - ABDOMINAL PAIN [None]
  - ANXIETY [None]
  - BARRETT'S OESOPHAGUS [None]
  - COLON CANCER STAGE III [None]
  - COLORECTAL CANCER STAGE II [None]
  - CONSTIPATION [None]
  - DEFORMITY [None]
  - DIARRHOEA [None]
  - DIVERTICULUM INTESTINAL [None]
  - DRUG DEPENDENCE [None]
  - ECONOMIC PROBLEM [None]
  - EROSIVE DUODENITIS [None]
  - EROSIVE OESOPHAGITIS [None]
  - GASTRITIS [None]
  - GASTRITIS EROSIVE [None]
  - GASTROINTESTINAL HAEMORRHAGE [None]
  - HAEMATEMESIS [None]
  - HAEMORRHOIDS [None]
  - HELICOBACTER INFECTION [None]
  - HEPATOMEGALY [None]
  - HIATUS HERNIA [None]
  - INCREASED APPETITE [None]
  - INJURY [None]
  - IRON DEFICIENCY ANAEMIA [None]
  - IRRITABLE BOWEL SYNDROME [None]
  - PAIN [None]
  - PEPTIC ULCER [None]
  - RECTAL HAEMORRHAGE [None]
  - WEIGHT DECREASED [None]
  - WEIGHT INCREASED [None]
